FAERS Safety Report 5351963-1 (Version None)
Quarter: 2007Q2

REPORT INFORMATION
  Report Type: 
  Country: None (occurrence: None)
  Receive Date: 20070611
  Receipt Date: 20070604
  Transmission Date: 20071010
  Serious: Yes (Hospitalization)
  Sender: FDA-Public Use
  Company Number: JP-SP-2007-01675

PATIENT
  Age: 69 Year
  Sex: Male

DRUGS (6)
  1. IMMUCYST [Suspect]
     Indication: URINARY TRACT CARCINOMA IN SITU
     Route: 065
     Dates: start: 20040510, end: 20040614
  2. IMMUCYST [Suspect]
     Route: 065
     Dates: start: 20040510, end: 20040614
  3. NAFTOPIDIL [Concomitant]
     Route: 048
     Dates: start: 20020422, end: 20060701
  4. FLAVOXATE HCL [Concomitant]
     Route: 048
     Dates: start: 20030616
  5. LEVOFLOXACIN [Concomitant]
     Route: 048
  6. OXYBUTYNIN CHLORIDE [Concomitant]
     Route: 048
     Dates: start: 20040521, end: 20040614

REACTIONS (5)
  - INCORRECT ROUTE OF DRUG ADMINISTRATION [None]
  - LOCAL SWELLING [None]
  - LYMPH NODE TUBERCULOSIS [None]
  - PYREXIA [None]
  - RETROPERITONEAL ABSCESS [None]
